FAERS Safety Report 4960327-1 (Version None)
Quarter: 2006Q1

REPORT INFORMATION
  Report Type: 
  Country: None (occurrence: None)
  Receive Date: 20060328
  Receipt Date: 20060315
  Transmission Date: 20060701
  Serious: Yes (Hospitalization)
  Sender: FDA-Public Use
  Company Number: HQWYE344515MAR06

PATIENT
  Sex: Female

DRUGS (1)
  1. TRIQUILAR-21 (LEVONORGESTREL/ETHINYL ESTRADIOL, TABLET) [Suspect]
     Indication: METRORRHAGIA
     Dosage: ORAL
     Route: 048

REACTIONS (2)
  - DRUG INEFFECTIVE [None]
  - METRORRHAGIA [None]
